FAERS Safety Report 11865580 (Version 1)
Quarter: 2015Q4

REPORT INFORMATION
  Report Type: Spontaneous
  Country: FR (occurrence: FR)
  Receive Date: 20151223
  Receipt Date: 20151223
  Transmission Date: 20160305
  Serious: Yes (Hospitalization)
  Sender: FDA-Public Use
  Company Number: FR-SA-2015SA212658

PATIENT
  Age: 26 Year
  Sex: Female

DRUGS (10)
  1. TAXOTERE [Suspect]
     Active Substance: DOCETAXEL
     Indication: BREAST CANCER
     Dosage: ROUTE: INTRAVENOUS INFUSION
     Dates: start: 20150917, end: 20151029
  2. NEULASTA [Suspect]
     Active Substance: PEGFILGRASTIM
     Indication: BREAST CANCER
     Route: 042
     Dates: start: 20150917, end: 20151029
  3. METHYLPREDNISOLONE. [Concomitant]
     Active Substance: METHYLPREDNISOLONE
  4. EMEND [Concomitant]
     Active Substance: APREPITANT
  5. LEXOMIL [Concomitant]
     Active Substance: BROMAZEPAM
  6. ZOPHREN [Concomitant]
     Active Substance: ONDANSETRON
  7. DOXYCYCLINE. [Suspect]
     Active Substance: DOXYCYCLINE
     Indication: BREAST CANCER
     Route: 042
     Dates: start: 20150619, end: 20150824
  8. ESOMEPRAZOLE [Concomitant]
     Active Substance: ESOMEPRAZOLE
  9. ATARAX [Concomitant]
     Active Substance: HYDROXYZINE\HYDROXYZINE HYDROCHLORIDE
  10. DAFALGAN [Concomitant]
     Active Substance: ACETAMINOPHEN

REACTIONS (2)
  - Intracranial pressure increased [Unknown]
  - Papilloedema [Unknown]

NARRATIVE: CASE EVENT DATE: 20151029
